FAERS Safety Report 8389851-9 (Version None)
Quarter: 2012Q2

REPORT INFORMATION
  Report Type: 
  Country: None (occurrence: None)
  Receive Date: 20120529
  Receipt Date: 20120517
  Transmission Date: 20120825
  Serious: Yes (Other)
  Sender: FDA-Public Use
  Company Number: GB-BAYER-2012-052250

PATIENT
  Sex: Female

DRUGS (1)
  1. MIRENA [Suspect]
     Indication: MENORRHAGIA
     Dosage: 20 MCG/24HR, CONT
     Route: 015
     Dates: start: 20120101

REACTIONS (8)
  - FEELING ABNORMAL [None]
  - MOOD ALTERED [None]
  - HYPERSOMNIA [None]
  - SOMNOLENCE [None]
  - MENSTRUAL DISORDER [None]
  - DYSMENORRHOEA [None]
  - LOSS OF LIBIDO [None]
  - BACTERIAL INFECTION [None]
